FAERS Safety Report 4644002-9 (Version None)
Quarter: 2005Q1

REPORT INFORMATION
  Report Type: 
  Country: None (occurrence: None)
  Receive Date: 20050331
  Receipt Date: 20050119
  Transmission Date: 20050727
  Serious: No
  Sender: FDA-Public Use
  Company Number: 04P-163-0283871-00

PATIENT
  Age: 39 Year
  Sex: Male
  Weight: 81.6475 kg

DRUGS (6)
  1. HUMIRA [Suspect]
     Indication: RHEUMATOID ARTHRITIS
     Dosage: 40 MG, 1 IN 2 WK, SUBCUTANEOUS
     Route: 058
     Dates: start: 20040105, end: 20041012
  2. METHOTREXATE [Concomitant]
  3. FOLIC ACID [Concomitant]
  4. INFLIXIMAB [Concomitant]
  5. ETODOLAC [Concomitant]
  6. ETANERCEPT [Concomitant]

REACTIONS (1)
  - MALIGNANT MELANOMA [None]
